FAERS Safety Report 11534312 (Version 1)
Quarter: 2015Q3

REPORT INFORMATION
  Report Type: Report from Study
  Country: AR (occurrence: AR)
  Receive Date: 20150922
  Receipt Date: 20150922
  Transmission Date: 20151125
  Serious: Yes (Hospitalization, Disabling)
  Sender: FDA-Public Use
  Company Number: AR-ABBVIE-15K-007-1461398-00

PATIENT
  Sex: Female

DRUGS (1)
  1. HUMIRA [Suspect]
     Active Substance: ADALIMUMAB
     Indication: RHEUMATOID ARTHRITIS
     Route: 058
     Dates: start: 20120501

REACTIONS (1)
  - Cartilage injury [Recovered/Resolved]
